FAERS Safety Report 10441167 (Version 2)
Quarter: 2014Q4

REPORT INFORMATION
  Report Type: Spontaneous
  Country: IT (occurrence: IT)
  Receive Date: 20140909
  Receipt Date: 20141017
  Transmission Date: 20150528
  Serious: Yes (Other)
  Sender: FDA-Public Use
  Company Number: IT-ASTRAZENECA-2014SE64187

PATIENT
  Age: 4724 Day
  Sex: Male
  Weight: 38 kg

DRUGS (11)
  1. LINEZOLID. [Concomitant]
     Active Substance: LINEZOLID
     Route: 042
     Dates: start: 20140205, end: 20140217
  2. AMIKACIN [Concomitant]
     Active Substance: AMIKACIN
     Route: 042
     Dates: start: 20140207, end: 20140219
  3. MEROPENEM. [Concomitant]
     Active Substance: MEROPENEM
     Route: 042
     Dates: start: 20140208, end: 20140214
  4. MOXIFLOXACIN [Concomitant]
     Active Substance: MOXIFLOXACIN
     Route: 048
     Dates: start: 20140205, end: 20140219
  5. TERIZIDONE [Concomitant]
     Active Substance: TERIZIDONE
     Route: 048
     Dates: start: 20140205, end: 20140208
  6. CLOFAZIMINE [Concomitant]
     Active Substance: CLOFAZIMINE
     Route: 048
     Dates: start: 20140211, end: 20140213
  7. ETHIONAMIDE [Concomitant]
     Active Substance: ETHIONAMIDE
     Route: 048
     Dates: start: 20140211, end: 20140214
  8. OMEPRAZOLE IV [Suspect]
     Active Substance: OMEPRAZOLE
     Indication: NAUSEA
     Route: 042
     Dates: start: 20140213, end: 20140223
  9. OMEPRAZOLE. [Suspect]
     Active Substance: OMEPRAZOLE
     Indication: HYPERCHLORHYDRIA
     Route: 048
     Dates: start: 20140205, end: 20140217
  10. 4-AMINOSALICYLIC ACID [Concomitant]
     Route: 048
     Dates: start: 20140205, end: 20140217
  11. AMOXICILLIN+CLAVULANIC ACID [Concomitant]
     Active Substance: AMOXICILLIN\CLAVULANIC ACID
     Route: 042
     Dates: start: 20140205, end: 20140219

REACTIONS (1)
  - Pancreatitis [Recovered/Resolved]

NARRATIVE: CASE EVENT DATE: 20140213
